FAERS Safety Report 18097108 (Version 1)
Quarter: 2020Q3

REPORT INFORMATION
  Report Type: Spontaneous
  Country: US (occurrence: US)
  Receive Date: 20200730
  Receipt Date: 20200730
  Transmission Date: 20201103
  Serious: Yes (Other)
  Sender: FDA-Public Use
  Company Number: US-NOVOPROD-742406

PATIENT
  Age: 70 Year
  Sex: Female

DRUGS (3)
  1. BASAGLAR [Suspect]
     Active Substance: INSULIN GLARGINE
     Indication: PRODUCT USED FOR UNKNOWN INDICATION
     Dosage: UNK
     Route: 058
  2. NOVOLOG [Suspect]
     Active Substance: INSULIN ASPART
     Indication: TYPE 2 DIABETES MELLITUS
     Dosage: UNK
     Route: 058
  3. NOVOLOG [Suspect]
     Active Substance: INSULIN ASPART
     Dosage: UNK(SLIDING SCALE)
     Route: 058

REACTIONS (3)
  - Gastric cancer [Unknown]
  - Breast cancer [Unknown]
  - Gastrointestinal carcinoma [Unknown]

NARRATIVE: CASE EVENT DATE: 2015
